FAERS Safety Report 9685792 (Version 1)
Quarter: 2013Q4

REPORT INFORMATION
  Report Type: Spontaneous
  Country: DE (occurrence: DE)
  Receive Date: 20131113
  Receipt Date: 20131113
  Transmission Date: 20140711
  Serious: Yes (Hospitalization)
  Sender: FDA-Public Use
  Company Number: DE-TEVA-442723GER

PATIENT
  Age: 56 Year
  Sex: Female
  Weight: 105 kg

DRUGS (3)
  1. METFORMIN [Suspect]
     Indication: TYPE 2 DIABETES MELLITUS
     Route: 048
  2. FORXIGA [Suspect]
     Dosage: 10 MILLIGRAM DAILY;
     Route: 048
  3. PROPAFENON [Concomitant]
     Dosage: 150 MILLIGRAM DAILY;

REACTIONS (4)
  - Metabolic acidosis [Recovering/Resolving]
  - Pneumonia [Unknown]
  - Sepsis [Unknown]
  - Brain stem infarction [Unknown]
